FAERS Safety Report 16542837 (Version 1)
Quarter: 2019Q3

REPORT INFORMATION
  Report Type: Spontaneous
  Country: SE (occurrence: SE)
  Receive Date: 20190709
  Receipt Date: 20190709
  Transmission Date: 20191004
  Serious: Yes (Death)
  Sender: FDA-Public Use
  Company Number: SE-SA-2019SA183047

PATIENT
  Age: 65 Year
  Sex: Female

DRUGS (10)
  1. FURIX [FUROSEMIDE] [Concomitant]
     Dosage: UNK
  2. MULTAQ [Suspect]
     Active Substance: DRONEDARONE
     Dosage: 2 (UNKNOWN UNIT), QD
     Route: 048
     Dates: start: 20110420
  3. BISOPROLOL [Concomitant]
     Active Substance: BISOPROLOL
     Dosage: UNK
  4. METFORMIN HYDROCHLORIDE. [Interacting]
     Active Substance: METFORMIN HYDROCHLORIDE
     Dosage: 3 (UNKNOWN UNIT), QD
     Route: 048
  5. SIMIDON [Concomitant]
     Active Substance: SIMVASTATIN
     Dosage: UNK
  6. ENALAPRIL MALEATE. [Interacting]
     Active Substance: ENALAPRIL MALEATE
     Dosage: 1 (UNKNOWN UNIT), QD
     Route: 048
     Dates: start: 20091104
  7. OZEMPIC [Interacting]
     Active Substance: SEMAGLUTIDE
     Dosage: 0.5 MG, QW
     Route: 058
     Dates: start: 20190516
  8. WARAN [Concomitant]
     Active Substance: WARFARIN SODIUM
     Dosage: UNK
  9. OZEMPIC [Interacting]
     Active Substance: SEMAGLUTIDE
     Dosage: 0.25 MG, QW
     Route: 058
     Dates: start: 201904, end: 20190515
  10. ALVEDON [Concomitant]
     Active Substance: ACETAMINOPHEN
     Dosage: UNK

REACTIONS (3)
  - Drug interaction [Fatal]
  - Renal failure [Fatal]
  - Lactic acidosis [Fatal]

NARRATIVE: CASE EVENT DATE: 201906
